FAERS Safety Report 5323691-X (Version None)
Quarter: 2007Q2

REPORT INFORMATION
  Report Type: 
  Country: None (occurrence: None)
  Receive Date: 20070514
  Receipt Date: 20070501
  Transmission Date: 20071010
  Serious: Yes (Death, Other)
  Sender: FDA-Public Use
  Company Number: US-ROCHE-495809

PATIENT
  Sex: Male

DRUGS (1)
  1. ACCUTANE [Suspect]
     Indication: ACNE
     Route: 065

REACTIONS (11)
  - AFFECT LABILITY [None]
  - AGGRESSION [None]
  - AGITATION [None]
  - ANGER [None]
  - AUTOMATISM [None]
  - COMPLETED SUICIDE [None]
  - DELIRIUM [None]
  - DEPRESSION [None]
  - DISCOMFORT [None]
  - IMPULSE-CONTROL DISORDER [None]
  - SUICIDAL IDEATION [None]
